FAERS Safety Report 17852353 (Version 1)
Quarter: 2020Q2

REPORT INFORMATION
  Report Type: Spontaneous
  Country: US (occurrence: US)
  Receive Date: 20200603
  Receipt Date: 20200603
  Transmission Date: 20200714
  Serious: Yes (Life-Threatening, Other)
  Sender: FDA-Public Use
  Company Number: US-SUN PHARMACEUTICAL INDUSTRIES LTD-2020R1-248993

PATIENT
  Age: 23 Year
  Sex: Male

DRUGS (1)
  1. CAFFEINE. [Suspect]
     Active Substance: CAFFEINE
     Indication: PRODUCT USED FOR UNKNOWN INDICATION
     Dosage: 4000MG, UNK
     Route: 065

REACTIONS (10)
  - Miosis [Unknown]
  - Toxicity to various agents [Unknown]
  - Ventricular tachycardia [Unknown]
  - Electrocardiogram QRS complex prolonged [Unknown]
  - Suicide attempt [Unknown]
  - Electrocardiogram QT prolonged [Unknown]
  - Atrial fibrillation [Unknown]
  - Hyperhidrosis [Unknown]
  - Hypotension [Unknown]
  - Mental impairment [Unknown]
